FAERS Safety Report 5067120-2 (Version None)
Quarter: 2006Q3

REPORT INFORMATION
  Report Type: 
  Country: None (occurrence: None)
  Receive Date: 20060801
  Receipt Date: 20060721
  Transmission Date: 20061208
  Serious: Yes (Hospitalization, Other)
  Sender: FDA-Public Use
  Company Number: AU-AMGEN-US187337

PATIENT
  Sex: Female

DRUGS (13)
  1. ARANESP [Suspect]
     Indication: RENAL TRANSPLANT
     Route: 058
     Dates: start: 20060327, end: 20060712
  2. CYCLOSPORINE [Concomitant]
     Route: 065
  3. ISOSORBIDE MONONITRATE [Concomitant]
     Route: 065
  4. CALCITRIOL [Concomitant]
     Route: 065
  5. FOLIC ACID [Concomitant]
     Route: 065
  6. MAGNESIUM [Concomitant]
     Route: 065
  7. METOPROLOL [Concomitant]
     Route: 065
  8. MULTI B-FORTE [Concomitant]
     Route: 065
  9. FERRO-GRAD [Concomitant]
     Route: 065
  10. PANTOPRAZOLE SODIUM [Concomitant]
     Route: 065
  11. FUROSEMIDE [Concomitant]
     Route: 065
  12. FLUDROCORTISONE [Concomitant]
     Route: 065
  13. PERINDOPRIL [Concomitant]
     Route: 065
     Dates: start: 20050801

REACTIONS (2)
  - ANAEMIA [None]
  - APLASIA PURE RED CELL [None]
